FAERS Safety Report 19172132 (Version 1)
Quarter: 2021Q2

REPORT INFORMATION
  Report Type: Spontaneous
  Country: US (occurrence: US)
  Receive Date: 20210422
  Receipt Date: 20210422
  Transmission Date: 20210717
  Serious: No
  Sender: FDA-Public Use
  Company Number: None

PATIENT
  Age: 55 Year
  Sex: Female

DRUGS (1)
  1. LAPATINIB 250MG LUPIN PHARMACEUTICALS [Suspect]
     Active Substance: LAPATINIB
     Indication: BREAST CANCER
     Route: 048
     Dates: start: 20201128

REACTIONS (3)
  - Product substitution issue [None]
  - Rash [None]
  - Insurance issue [None]

NARRATIVE: CASE EVENT DATE: 202103
